FAERS Safety Report 20069208 (Version 1)
Quarter: 2021Q4

REPORT INFORMATION
  Report Type: Spontaneous
  Country: ES (occurrence: ES)
  Receive Date: 20211115
  Receipt Date: 20211115
  Transmission Date: 20220303
  Serious: Yes (Other)
  Sender: FDA-Public Use
  Company Number: ES-ACTAVIS-2013-26240

PATIENT
  Age: 70 Year
  Sex: Male

DRUGS (5)
  1. NEVIRAPINE [Suspect]
     Active Substance: NEVIRAPINE
     Indication: HIV infection
     Dosage: UNK UNK, QD (UNK UNK, TWO TIMES A DAY)
     Route: 065
  2. VALSARTAN [Concomitant]
     Active Substance: VALSARTAN
     Indication: Hypertension
     Dosage: UNK
     Route: 065
  3. TENOFOVIR [Concomitant]
     Active Substance: TENOFOVIR
     Indication: HIV infection
     Dosage: UNK
     Route: 065
  4. EPOETIN ALFA [Concomitant]
     Active Substance: ERYTHROPOIETIN
     Indication: Product used for unknown indication
     Dosage: UNK UNK, QW (30,000 UNITS PER WEEK)
     Route: 065
  5. LAMIVUDINE [Concomitant]
     Active Substance: LAMIVUDINE
     Indication: HIV infection
     Dosage: UNK
     Route: 065

REACTIONS (2)
  - Hyperhidrosis [Recovered/Resolved]
  - Inappropriate schedule of product administration [Unknown]
